FAERS Safety Report 21099016 (Version 1)
Quarter: 2022Q3

REPORT INFORMATION
  Report Type: Spontaneous
  Country: US (occurrence: US)
  Receive Date: 20220719
  Receipt Date: 20220719
  Transmission Date: 20221027
  Serious: No
  Sender: FDA-Public Use
  Company Number: US-IGSA-BIG0019399

PATIENT
  Age: 19 Year
  Sex: Female
  Weight: 61.2 kg

DRUGS (3)
  1. XEMBIFY [Suspect]
     Active Substance: HUMAN IMMUNOGLOBULIN G
     Indication: Immunodeficiency
     Dosage: UNK UNK, Q.WK.
     Route: 058
     Dates: start: 202206
  2. MOTRIN [Concomitant]
     Active Substance: IBUPROFEN
     Indication: Premedication
  3. BENADRYL [Concomitant]
     Active Substance: DIPHENHYDRAMINE HYDROCHLORIDE
     Indication: Premedication

REACTIONS (3)
  - Paraesthesia [Recovering/Resolving]
  - Burning sensation [Recovering/Resolving]
  - Gait disturbance [Recovering/Resolving]

NARRATIVE: CASE EVENT DATE: 20220601
